FAERS Safety Report 23966466 (Version 1)
Quarter: 2024Q2

REPORT INFORMATION
  Report Type: Spontaneous
  Country: US (occurrence: US)
  Receive Date: 20240612
  Receipt Date: 20240612
  Transmission Date: 20240716
  Serious: Yes (Hospitalization, Other)
  Sender: FDA-Public Use
  Company Number: US-BRISTOL-MYERS SQUIBB COMPANY-2024-090451

PATIENT
  Age: 39 Year
  Sex: Female

DRUGS (3)
  1. SPRYCEL [Suspect]
     Active Substance: DASATINIB
     Indication: Acute lymphocytic leukaemia
     Dates: start: 2019, end: 202310
  2. SPRYCEL [Suspect]
     Active Substance: DASATINIB
     Dates: end: 202402
  3. SPRYCEL [Suspect]
     Active Substance: DASATINIB
     Route: 048
     Dates: start: 202308

REACTIONS (7)
  - Tinnitus [Unknown]
  - Feeling hot [Recovering/Resolving]
  - Feeling of despair [Recovering/Resolving]
  - Ear haemorrhage [Unknown]
  - Ear inflammation [Unknown]
  - Hepatitis [Unknown]
  - Hepatic pain [Unknown]

NARRATIVE: CASE EVENT DATE: 20240501
